FAERS Safety Report 21299499 (Version 2)
Quarter: 2022Q3

REPORT INFORMATION
  Report Type: Report from Study
  Country: CH (occurrence: CH)
  Receive Date: 20220906
  Receipt Date: 20220921
  Transmission Date: 20221027
  Serious: Yes (Hospitalization)
  Sender: FDA-Public Use
  Company Number: CH-BRISTOL-MYERS SQUIBB COMPANY-2022-098188

PATIENT
  Age: 75 Year
  Sex: Female
  Weight: 65 kg

DRUGS (2)
  1. VITAMIN D3 STREULI DROPS [Concomitant]
     Indication: Prophylaxis
     Dosage: 1DF=8 UNITS
     Route: 048
     Dates: start: 2018
  2. A. VOGEL JOINT GEL [Concomitant]
     Indication: Arthralgia
     Dosage: 1 DF= 1 UNIT NOS
     Route: 061
     Dates: start: 20220801, end: 20220826

REACTIONS (1)
  - Bursitis [Recovered/Resolved]

NARRATIVE: CASE EVENT DATE: 20220826
